FAERS Safety Report 16087750 (Version 1)
Quarter: 2019Q1

REPORT INFORMATION
  Report Type: Spontaneous
  Country: US (occurrence: US)
  Receive Date: 20190319
  Receipt Date: 20190319
  Transmission Date: 20190418
  Serious: Yes (Other)
  Sender: FDA-Public Use
  Company Number: US-GLAXOSMITHKLINE-US2019047167

PATIENT
  Sex: Female

DRUGS (1)
  1. BREO ELLIPTA [Suspect]
     Active Substance: FLUTICASONE FUROATE\VILANTEROL TRIFENATATE
     Indication: PRODUCT USED FOR UNKNOWN INDICATION
     Dosage: UNK
     Dates: start: 2016

REACTIONS (5)
  - Headache [Not Recovered/Not Resolved]
  - Stomatitis [Recovered/Resolved]
  - Dysphonia [Not Recovered/Not Resolved]
  - Tooth infection [Recovered/Resolved]
  - Oxygen therapy [Recovered/Resolved]
